FAERS Safety Report 8122413-7 (Version None)
Quarter: 2012Q1

REPORT INFORMATION
  Report Type: 
  Country: None (occurrence: None)
  Receive Date: 20120208
  Receipt Date: 20120130
  Transmission Date: 20120608
  Serious: Yes (Other)
  Sender: FDA-Public Use
  Company Number: JP-GLAXOSMITHKLINE-B0779115A

PATIENT
  Age: 81 Year
  Sex: Female

DRUGS (1)
  1. PROMACTA [Suspect]
     Dosage: 50MG PER DAY
     Route: 048

REACTIONS (3)
  - PYREXIA [None]
  - C-REACTIVE PROTEIN INCREASED [None]
  - BLOOD CREATINE PHOSPHOKINASE INCREASED [None]
